FAERS Safety Report 19097296 (Version 1)
Quarter: 2021Q2

REPORT INFORMATION
  Report Type: Spontaneous
  Country: AR (occurrence: AR)
  Receive Date: 20210406
  Receipt Date: 20210406
  Transmission Date: 20210717
  Serious: Yes (Hospitalization, Other)
  Sender: FDA-Public Use
  Company Number: AR-PFIZER INC-2021325384

PATIENT
  Age: 69 Year
  Sex: Male

DRUGS (3)
  1. SUTENT [Suspect]
     Active Substance: SUNITINIB MALATE
     Dosage: 50 MG, DAILY (28 DAYS)
  2. SUTENT [Suspect]
     Active Substance: SUNITINIB MALATE
     Indication: METASTATIC RENAL CELL CARCINOMA
     Dosage: 50 MG, UNK
     Dates: start: 20190427
  3. SUTENT [Suspect]
     Active Substance: SUNITINIB MALATE
     Dosage: 50 MG, CYCLIC (DAILY, 14/7 DAYS OFF)

REACTIONS (9)
  - Tumour rupture [Unknown]
  - Haematuria [Recovered/Resolved]
  - Hiatus hernia [Unknown]
  - Feeling hot [Recovered/Resolved]
  - COVID-19 [Recovered/Resolved]
  - Pulmonary embolism [Recovered/Resolved]
  - Tumour haemorrhage [Unknown]
  - Aphthous ulcer [Recovered/Resolved]
  - Abdominal discomfort [Recovered/Resolved]

NARRATIVE: CASE EVENT DATE: 202008
